FAERS Safety Report 7375382-1 (Version None)
Quarter: 2011Q1

REPORT INFORMATION
  Report Type: 
  Country: None (occurrence: None)
  Receive Date: 20110325
  Receipt Date: 20110321
  Transmission Date: 20110831
  Serious: Yes (Hospitalization)
  Sender: FDA-Public Use
  Company Number: FR-SANOFI-AVENTIS-2011SA017611

PATIENT
  Age: 68 Year
  Sex: Female

DRUGS (25)
  1. NOCTRAN [Concomitant]
     Dates: end: 20101209
  2. CREON [Concomitant]
  3. DURAGESIC-100 [Suspect]
     Route: 062
     Dates: start: 20101207, end: 20101215
  4. DAFALGAN [Concomitant]
     Dates: end: 20101209
  5. PREVISCAN [Suspect]
     Route: 048
     Dates: start: 20101207, end: 20101209
  6. LEXOMIL [Concomitant]
     Dates: end: 20101209
  7. SOLUPRED [Concomitant]
     Dates: end: 20101209
  8. ONDANSETRON [Suspect]
     Indication: PREMEDICATION
     Dates: start: 20101207, end: 20101207
  9. LEVOFOLINATE DE CALCIUM WINTHROP [Concomitant]
     Dates: start: 20101207, end: 20101207
  10. INIPOMP [Concomitant]
     Dates: end: 20101209
  11. FORADIL [Concomitant]
  12. BUDESONIDE [Concomitant]
  13. ALDALIX [Concomitant]
  14. ELOXATIN [Suspect]
     Indication: PANCREATIC CARCINOMA
     Dates: start: 20101207, end: 20101207
  15. FUNGIZONE [Concomitant]
     Dates: end: 20101209
  16. SODIUM BICARBONATE [Concomitant]
     Dates: end: 20101209
  17. SPIRIVA [Concomitant]
  18. SOLU-MEDROL [Concomitant]
     Indication: PREMEDICATION
     Dates: start: 20101207
  19. URSOLVAN [Concomitant]
     Dates: end: 20101209
  20. FLUOROURACILE WINTHROP [Suspect]
     Indication: PANCREATIC CARCINOMA
     Dates: start: 20101207, end: 20101208
  21. LANTUS [Concomitant]
  22. ZOPHREN [Suspect]
     Route: 048
     Dates: start: 20101207, end: 20101209
  23. METEOSPASMYL [Concomitant]
     Dates: end: 20101209
  24. LOXEN [Concomitant]
     Dates: end: 20101209
  25. TRANXENE [Concomitant]
     Dates: end: 20101209

REACTIONS (3)
  - GRAND MAL CONVULSION [None]
  - HAEMATOMA [None]
  - CEREBROVASCULAR ACCIDENT [None]
